APPROVED DRUG PRODUCT: CARBOPLATIN
Active Ingredient: CARBOPLATIN
Strength: 600MG/60ML (10MG/ML)
Dosage Form/Route: INJECTABLE;INTRAVENOUS
Application: A091268 | Product #002 | TE Code: AP
Applicant: EPIC PHARMA LLC
Approved: Jul 28, 2010 | RLD: No | RS: No | Type: RX